FAERS Safety Report 23022876 (Version 1)
Quarter: 2023Q4

REPORT INFORMATION
  Report Type: Spontaneous
  Country: US (occurrence: None)
  Receive Date: 20231003
  Receipt Date: 20231003
  Transmission Date: 20240110
  Serious: No
  Sender: FDA-Public Use
  Company Number: None

PATIENT
  Sex: Female

DRUGS (1)
  1. ELAHERE [Suspect]
     Active Substance: MIRVETUXIMAB SORAVTANSINE-GYNX

REACTIONS (9)
  - Vision blurred [None]
  - Abdominal pain upper [None]
  - Nausea [None]
  - Vomiting [None]
  - Urticaria [None]
  - Pneumonitis [None]
  - Neuropathy peripheral [None]
  - Fatigue [None]
  - Infusion related reaction [None]
